FAERS Safety Report 20649183 (Version 1)
Quarter: 2022Q1

REPORT INFORMATION
  Report Type: Spontaneous
  Country: US (occurrence: US)
  Receive Date: 20220329
  Receipt Date: 20220329
  Transmission Date: 20220423
  Serious: No
  Sender: FDA-Public Use
  Company Number: US-PFIZER INC-202101639298

PATIENT
  Age: 84 Year
  Sex: Female
  Weight: 86.18 kg

DRUGS (1)
  1. DETROL LA [Suspect]
     Active Substance: TOLTERODINE TARTRATE
     Indication: Bladder disorder
     Dosage: UNK, 1X/DAY (AT NIGHT)

REACTIONS (1)
  - Body height decreased [Unknown]
